FAERS Safety Report 8507027-9 (Version None)
Quarter: 2012Q3

REPORT INFORMATION
  Report Type: 
  Country: None (occurrence: None)
  Receive Date: 20120712
  Receipt Date: 20120711
  Transmission Date: 20120928
  Serious: Yes (Other)
  Sender: FDA-Public Use
  Company Number: PHHY2012JP059596

PATIENT
  Age: 85 Year
  Sex: Male

DRUGS (2)
  1. ANTIGLAUCOMA PREPARATIONS [Suspect]
     Indication: GLAUCOMA
     Dosage: UNK UKN, UNK
     Route: 047
     Dates: end: 20120709
  2. DIOVAN HCT [Suspect]
     Dosage: 1 DF, DAILY
     Route: 048
     Dates: start: 20110301

REACTIONS (1)
  - ASTHMA [None]
